FAERS Safety Report 9194989 (Version 1)
Quarter: 2013Q1

REPORT INFORMATION
  Report Type: Spontaneous
  Country: US (occurrence: US)
  Receive Date: 20130328
  Receipt Date: 20130328
  Transmission Date: 20140127
  Serious: No
  Sender: FDA-Public Use
  Company Number: US-ALLERGAN-1213254US

PATIENT
  Age: 54 Year
  Sex: Female

DRUGS (1)
  1. LATISSE 0.03% [Suspect]
     Indication: PRODUCT USED FOR UNKNOWN INDICATION
     Dosage: 1 GTT, QHS
     Route: 061

REACTIONS (6)
  - Diplopia [Recovering/Resolving]
  - Eyelid sensory disorder [Recovering/Resolving]
  - Eyelid ptosis [Recovering/Resolving]
  - Visual acuity reduced [Recovering/Resolving]
  - Wrong technique in drug usage process [Unknown]
  - Vision blurred [Recovering/Resolving]
